FAERS Safety Report 19912832 (Version 1)
Quarter: 2021Q4

REPORT INFORMATION
  Report Type: Spontaneous
  Country: US (occurrence: US)
  Receive Date: 20211004
  Receipt Date: 20211004
  Transmission Date: 20220304
  Serious: Yes (Hospitalization)
  Sender: FDA-Public Use
  Company Number: None

PATIENT
  Age: 48 Year
  Sex: Female
  Weight: 99 kg

DRUGS (1)
  1. REGEN-COV [Suspect]
     Active Substance: CASIRIVIMAB\IMDEVIMAB
     Indication: COVID-19
     Dosage: ?          OTHER FREQUENCY:ONCE;
     Route: 041
     Dates: start: 20210930, end: 20210930

REACTIONS (5)
  - Dyspnoea [None]
  - Pneumonitis [None]
  - Hypokalaemia [None]
  - Hyponatraemia [None]
  - Hypoxia [None]

NARRATIVE: CASE EVENT DATE: 20211001
